FAERS Safety Report 7642064-8 (Version None)
Quarter: 2011Q3

REPORT INFORMATION
  Report Type: 
  Country: None (occurrence: None)
  Receive Date: 20110728
  Receipt Date: 20110714
  Transmission Date: 20111222
  Serious: Yes (Death)
  Sender: FDA-Public Use
  Company Number: IE-ELI_LILLY_AND_COMPANY-IE201107004071

PATIENT
  Sex: Female

DRUGS (21)
  1. RAMIPRIL [Concomitant]
  2. DELTACORTRIL [Concomitant]
  3. NALOXONE [Concomitant]
  4. ATROVENT [Concomitant]
  5. LEXAPRO [Concomitant]
  6. ACETAMINOPHEN [Concomitant]
  7. CALCIUM CARBONATE [Concomitant]
  8. OXYCODONE HCL [Concomitant]
  9. NEXIUM [Concomitant]
  10. ZYDOL                              /00599202/ [Concomitant]
  11. TEGRETOL [Concomitant]
  12. DUPHALAC [Concomitant]
  13. FORTEO [Suspect]
     Indication: OSTEOPOROSIS
     Dosage: 20 UG, UNK
     Dates: start: 20110614, end: 20110701
  14. MOVICOL                            /01625101/ [Concomitant]
  15. LYRICA [Concomitant]
  16. IBRUPROFEN [Concomitant]
  17. DURAGESIC-100 [Concomitant]
  18. ZOLPIDEM TARTRATE [Concomitant]
  19. EXPUTEX [Concomitant]
  20. GALFER [Concomitant]
  21. KETAMINE HCL [Concomitant]

REACTIONS (1)
  - DEATH [None]
